FAERS Safety Report 6780329-2 (Version None)
Quarter: 2010Q2

REPORT INFORMATION
  Report Type: 
  Country: None (occurrence: None)
  Receive Date: 20100618
  Receipt Date: 20100611
  Transmission Date: 20101027
  Serious: Yes (Other)
  Sender: FDA-Public Use
  Company Number: US-AMGEN-QUU417944

PATIENT
  Sex: Female

DRUGS (2)
  1. ENBREL [Suspect]
     Indication: RHEUMATOID ARTHRITIS
  2. HUMIRA [Concomitant]

REACTIONS (5)
  - PAIN IN EXTREMITY [None]
  - PARAESTHESIA [None]
  - PROCEDURAL PAIN [None]
  - SPINAL FUSION SURGERY [None]
  - SPINAL LAMINECTOMY [None]
